FAERS Safety Report 13042252 (Version 1)
Quarter: 2016Q4

REPORT INFORMATION
  Report Type: Report from Study
  Country: US (occurrence: US)
  Receive Date: 20161219
  Receipt Date: 20161219
  Transmission Date: 20170207
  Serious: No
  Sender: FDA-Public Use
  Company Number: US-009507513-1612USA005504

PATIENT
  Sex: Female

DRUGS (2)
  1. EMEND [Suspect]
     Active Substance: APREPITANT
     Indication: VOMITING
  2. EMEND [Suspect]
     Active Substance: APREPITANT
     Indication: NAUSEA
     Route: 042

REACTIONS (1)
  - Product use issue [Unknown]
